FAERS Safety Report 18988044 (Version 1)
Quarter: 2021Q1

REPORT INFORMATION
  Report Type: Spontaneous
  Country: JP (occurrence: JP)
  Receive Date: 20210309
  Receipt Date: 20210309
  Transmission Date: 20210420
  Serious: Yes (Other)
  Sender: FDA-Public Use
  Company Number: JP-ELI_LILLY_AND_COMPANY-JP202102006268

PATIENT
  Age: 65 Year
  Sex: Male

DRUGS (5)
  1. NECITUMUMAB [Suspect]
     Active Substance: NECITUMUMAB
     Indication: SQUAMOUS CELL CARCINOMA
     Dosage: 800 MG, UNKNOWN
     Route: 041
     Dates: start: 20210127
  2. GEMCITABINE HYDROCHLORIDE. [Suspect]
     Active Substance: GEMCITABINE HYDROCHLORIDE
     Dosage: 960 MG, UNKNOWN
     Route: 041
  3. GEMCITABINE HYDROCHLORIDE. [Suspect]
     Active Substance: GEMCITABINE HYDROCHLORIDE
     Indication: SQUAMOUS CELL CARCINOMA
     Dosage: UNK, UNKNOWN
     Route: 041
  4. NECITUMUMAB [Suspect]
     Active Substance: NECITUMUMAB
     Dosage: 400 MG, UNKNOWN
     Route: 041
  5. CISPLATIN. [Concomitant]
     Active Substance: CISPLATIN
     Indication: SQUAMOUS CELL CARCINOMA
     Route: 041

REACTIONS (2)
  - Myelosuppression [Recovered/Resolved]
  - Rash [Recovered/Resolved]

NARRATIVE: CASE EVENT DATE: 20210129
